FAERS Safety Report 23505883 (Version 1)
Quarter: 2024Q1

REPORT INFORMATION
  Report Type: Spontaneous
  Country: NL (occurrence: NL)
  Receive Date: 20240209
  Receipt Date: 20240209
  Transmission Date: 20240410
  Serious: Yes (Other)
  Sender: FDA-Public Use
  Company Number: NL-FERRINGPH-2023FE05258

PATIENT
  Age: 30 Year
  Sex: Female
  Weight: 101 kg

DRUGS (7)
  1. ESTRADIOL [Suspect]
     Active Substance: ESTRADIOL
     Indication: Assisted reproductive technology
     Dosage: 4 MG
     Route: 065
     Dates: start: 20210709, end: 20210723
  2. GANIRELIX [Suspect]
     Active Substance: GANIRELIX
     Indication: Assisted reproductive technology
     Dosage: 25 UG, DAILY
     Route: 058
     Dates: start: 20210701, end: 20210707
  3. GONADOTROPHIN, CHORIONIC [Suspect]
     Active Substance: GONADOTROPHIN, CHORIONIC
     Indication: Assisted reproductive technology
     Dosage: 1500 INTERNATIONAL UNIT, ONCE/SINGLE
     Route: 058
     Dates: start: 20210709, end: 20210709
  4. PROGESTERONE [Suspect]
     Active Substance: PROGESTERONE
     Dosage: 400 MG, ONCE/SINGLE
     Route: 065
     Dates: start: 20210709, end: 20210709
  5. PROGESTERONE [Suspect]
     Active Substance: PROGESTERONE
     Indication: Assisted reproductive technology
     Dosage: 600 MG, DAILY
     Route: 065
     Dates: start: 20210710, end: 20210723
  6. FOLLITROPIN DELTA [Suspect]
     Active Substance: FOLLITROPIN DELTA
     Indication: Assisted reproductive technology
     Dosage: 10.3 UG, DAILY
     Route: 058
     Dates: start: 20210627, end: 20210706
  7. TRIPTORELIN ACETATE [Suspect]
     Active Substance: TRIPTORELIN ACETATE
     Indication: Assisted reproductive technology
     Dosage: 0.2 MG
     Route: 058
     Dates: start: 20210707, end: 20210707

REACTIONS (1)
  - Abortion spontaneous [Recovered/Resolved]
